FAERS Safety Report 12742405 (Version 1)
Quarter: 2016Q3

REPORT INFORMATION
  Report Type: Spontaneous
  Country: US (occurrence: US)
  Receive Date: 20160914
  Receipt Date: 20160914
  Transmission Date: 20161109
  Serious: No
  Sender: FDA-Public Use
  Company Number: US-JNJFOC-20160206303

PATIENT
  Age: 54 Year
  Sex: Male
  Weight: 135.17 kg

DRUGS (9)
  1. CLARITHROMYCIN. [Concomitant]
     Active Substance: CLARITHROMYCIN
     Route: 048
  2. INVOKANA [Suspect]
     Active Substance: CANAGLIFLOZIN
     Indication: DIABETES MELLITUS
     Route: 048
     Dates: start: 20141009, end: 20160106
  3. HUMALOG [Concomitant]
     Active Substance: INSULIN LISPRO
     Indication: TYPE 2 DIABETES MELLITUS
     Dosage: 120-150 UNITS DAILY VIA PUMP.
     Route: 058
     Dates: start: 20111114
  4. SIMVASTATIN. [Concomitant]
     Active Substance: SIMVASTATIN
     Route: 048
     Dates: start: 20110528, end: 20150304
  5. SILDENAFIL. [Concomitant]
     Active Substance: SILDENAFIL
     Route: 048
     Dates: start: 20131211
  6. NASONEX [Concomitant]
     Active Substance: MOMETASONE FUROATE
     Indication: NASOPHARYNGITIS
     Dosage: 2 SPRAYS INTRANASAL ONCE A DAY.
     Route: 045
     Dates: start: 20130125
  7. TANZEUM [Concomitant]
     Active Substance: ALBIGLUTIDE
     Route: 058
  8. LOSARTAN POTASSIUM/HCTZ [Concomitant]
     Dosage: 100-25 MG
     Route: 048
     Dates: start: 20150304
  9. SYMBICORT [Concomitant]
     Active Substance: BUDESONIDE\FORMOTEROL FUMARATE DIHYDRATE
     Indication: BRONCHITIS
     Dosage: 160 MCG-4.5 MCG/INH INHALATION AEROSOL, 2 PUFFS INH
     Route: 055
     Dates: start: 20130125

REACTIONS (1)
  - Haemoglobin increased [Recovered/Resolved]

NARRATIVE: CASE EVENT DATE: 20160101
